FAERS Safety Report 19204814 (Version 4)
Quarter: 2021Q4

REPORT INFORMATION
  Report Type: Spontaneous
  Country: PT (occurrence: PT)
  Receive Date: 20210503
  Receipt Date: 20211223
  Transmission Date: 20220303
  Serious: Yes (Other)
  Sender: FDA-Public Use
  Company Number: PT-AUROBINDO-AUR-APL-2021-015934

PATIENT
  Age: 75 Year
  Sex: Male

DRUGS (3)
  1. MEROPENEM [Suspect]
     Active Substance: MEROPENEM
     Indication: Antibiotic therapy
     Dosage: 1 GRAM (8/8 HOURS)
     Dates: start: 202007
  2. MEROPENEM [Suspect]
     Active Substance: MEROPENEM
     Indication: Bacterial infection
  3. ENOXAPARIN [Concomitant]
     Active Substance: ENOXAPARIN
     Indication: Thrombosis prophylaxis
     Dosage: 40 MILLIGRAM (FREQUENCY REPORTED AS ID)
     Dates: start: 202007, end: 202007

REACTIONS (2)
  - Pathogen resistance [Recovering/Resolving]
  - Fungaemia [Recovering/Resolving]

NARRATIVE: CASE EVENT DATE: 20200701
